FAERS Safety Report 13458468 (Version 1)
Quarter: 2017Q2

REPORT INFORMATION
  Report Type: Spontaneous
  Country: CN (occurrence: CN)
  Receive Date: 20170419
  Receipt Date: 20170419
  Transmission Date: 20170830
  Serious: Yes (Other)
  Sender: FDA-Public Use
  Company Number: CN-PFIZER INC-2017163911

PATIENT
  Sex: Female

DRUGS (2)
  1. METFORMIN HYDROCHLORIDE. [Suspect]
     Active Substance: METFORMIN HYDROCHLORIDE
  2. GLUCOTROL XL [Suspect]
     Active Substance: GLIPIZIDE
     Route: 048

REACTIONS (2)
  - Bile duct stone [Unknown]
  - Disease recurrence [Unknown]
